FAERS Safety Report 5972272-3 (Version None)
Quarter: 2008Q4

REPORT INFORMATION
  Report Type: 
  Country: None (occurrence: None)
  Receive Date: 20081201
  Receipt Date: 20080327
  Transmission Date: 20090506
  Serious: Yes (Other)
  Sender: FDA-Public Use
  Company Number: US-TEVA-166717USA

PATIENT
  Sex: Female
  Weight: 68.1 kg

DRUGS (3)
  1. SALBUTAMOL SULFATE INHALATION, 0.09 MG [Suspect]
     Indication: ASTHMA
     Dosage: 2 PUFFS IN MORNING AND 2 PUFFS IN EVENING
     Route: 055
     Dates: start: 20080121, end: 20080122
  2. TRIAMCINOLONE ACETONIDE [Suspect]
     Indication: ASTHMA
     Dosage: 4 PUFFS
     Dates: start: 20080121, end: 20080121
  3. LORAZEPAM [Concomitant]

REACTIONS (4)
  - DYSPNOEA [None]
  - EAR PAIN [None]
  - OBSTRUCTIVE AIRWAYS DISORDER [None]
  - SWOLLEN TONGUE [None]
